FAERS Safety Report 8533302-8 (Version None)
Quarter: 2012Q3

REPORT INFORMATION
  Report Type: 
  Country: None (occurrence: None)
  Receive Date: 20120724
  Receipt Date: 20120717
  Transmission Date: 20120928
  Serious: Yes (Hospitalization)
  Sender: FDA-Public Use
  Company Number: CH-SANOFI-AVENTIS-2012SA051315

PATIENT
  Age: 40 Year
  Sex: Female

DRUGS (8)
  1. PREDNISONE TAB [Concomitant]
     Indication: RHEUMATOID ARTHRITIS
     Route: 048
     Dates: start: 20110101
  2. ACETAMINOPHEN [Concomitant]
     Route: 048
  3. CALCIMAGON [Concomitant]
     Route: 048
  4. RABEPRAZOLE SODIUM [Concomitant]
     Route: 048
  5. ATORVASTATIN [Concomitant]
     Route: 048
  6. XANAX [Concomitant]
     Route: 048
  7. BUDESONIDE/FORMOTEROL [Concomitant]
     Route: 055
  8. ARAVA [Suspect]
     Indication: RHEUMATOID ARTHRITIS
     Route: 048
     Dates: start: 20110101, end: 20120630

REACTIONS (4)
  - TRANSIENT ISCHAEMIC ATTACK [None]
  - VIITH NERVE PARALYSIS [None]
  - HEMIPARESIS [None]
  - CEREBRAL ISCHAEMIA [None]
